FAERS Safety Report 4630550-4 (Version None)
Quarter: 2005Q2

REPORT INFORMATION
  Report Type: 
  Country: None (occurrence: None)
  Receive Date: 20050408
  Receipt Date: 20050404
  Transmission Date: 20051028
  Serious: Yes (Death)
  Sender: FDA-Public Use
  Company Number: JP-GLAXOSMITHKLINE-B0376726A

PATIENT
  Age: 82 Year
  Sex: Male

DRUGS (1)
  1. PAXIL [Suspect]
     Route: 048
     Dates: start: 20041101

REACTIONS (4)
  - DEATH [None]
  - HYPERTHERMIA [None]
  - MUSCLE RIGIDITY [None]
  - TREMOR [None]
